FAERS Safety Report 12176094 (Version 1)
Quarter: 2016Q1

REPORT INFORMATION
  Report Type: Spontaneous
  Country: SE (occurrence: SE)
  Receive Date: 20160314
  Receipt Date: 20160314
  Transmission Date: 20160526
  Serious: Yes (Other)
  Sender: FDA-Public Use
  Company Number: CHPA2016SE003048

PATIENT
  Age: 58 Year
  Sex: Female

DRUGS (1)
  1. NICOTINELL [Suspect]
     Active Substance: NICOTINE
     Indication: PRODUCT USED FOR UNKNOWN INDICATION
     Dosage: 6 GUMS PER DAY
     Route: 065
     Dates: start: 2012

REACTIONS (3)
  - Incorrect drug administration duration [Unknown]
  - Drug dependence [Unknown]
  - Wrong technique in product usage process [Unknown]
